FAERS Safety Report 11508575 (Version 3)
Quarter: 2015Q4

REPORT INFORMATION
  Report Type: Report from Study
  Country: US (occurrence: US)
  Receive Date: 20150915
  Receipt Date: 20151001
  Transmission Date: 20160304
  Serious: Yes (Other)
  Sender: FDA-Public Use
  Company Number: PHEH2015US017694

PATIENT
  Age: 73 Year
  Sex: Male
  Weight: 121.1 kg

DRUGS (1)
  1. ENTRESTO [Suspect]
     Active Substance: SACUBITRIL\VALSARTAN
     Indication: CARDIAC FAILURE CONGESTIVE
     Dosage: 24/26 MG, BID
     Route: 048
     Dates: start: 20150904, end: 20150906

REACTIONS (9)
  - Hypersensitivity [Recovering/Resolving]
  - Swelling face [Recovered/Resolved]
  - Wheezing [Recovering/Resolving]
  - Mouth swelling [Recovered/Resolved]
  - Cough [Unknown]
  - Dyspnoea [Recovering/Resolving]
  - Pharyngeal oedema [Recovered/Resolved]
  - Angioedema [Recovering/Resolving]
  - Dysphagia [Recovered/Resolved]

NARRATIVE: CASE EVENT DATE: 20150905
